FAERS Safety Report 18937192 (Version 1)
Quarter: 2021Q1

REPORT INFORMATION
  Report Type: Report from Study
  Country: None (occurrence: US)
  Receive Date: 20210225
  Receipt Date: 20210225
  Transmission Date: 20210420
  Serious: Yes (Death)
  Sender: FDA-Public Use
  Company Number: US-ABBVIE-21K-163-3788310-00

PATIENT
  Sex: Male

DRUGS (1)
  1. VENCLEXTA [Suspect]
     Active Substance: VENETOCLAX
     Indication: PLASMA CELL MYELOMA RECURRENT
     Dosage: TAKE EIGHT TABLETS BY MOUTH
     Route: 048
     Dates: start: 20180515

REACTIONS (2)
  - Off label use [Unknown]
  - Death [Fatal]
